FAERS Safety Report 5185810-8 (Version None)
Quarter: 2006Q4

REPORT INFORMATION
  Report Type: 
  Country: None (occurrence: None)
  Receive Date: 20061220
  Receipt Date: 20060915
  Transmission Date: 20070319
  Serious: No
  Sender: FDA-Public Use
  Company Number: US-GLAXOSMITHKLINE-A0620285A

PATIENT
  Age: 24 Year
  Sex: Female

DRUGS (3)
  1. NICODERM CQ [Suspect]
     Dosage: 21MG PER DAY
     Route: 062
     Dates: start: 20060628, end: 20060101
  2. NICODERM CQ [Suspect]
     Dosage: 14MG PER DAY
     Route: 062
     Dates: start: 20060101, end: 20060101
  3. NICODERM CQ [Suspect]
     Dosage: 7MG PER DAY
     Route: 062
     Dates: start: 20060101

REACTIONS (9)
  - APPLICATION SITE PAIN [None]
  - FATIGUE [None]
  - HEADACHE [None]
  - INTENTIONAL DRUG MISUSE [None]
  - MALAISE [None]
  - MYALGIA [None]
  - NICOTINE DEPENDENCE [None]
  - PAIN [None]
  - STOMACH DISCOMFORT [None]
